FAERS Safety Report 21574093 (Version 2)
Quarter: 2022Q4

REPORT INFORMATION
  Report Type: Spontaneous
  Country: JP (occurrence: JP)
  Receive Date: 20221109
  Receipt Date: 20221116
  Transmission Date: 20230113
  Serious: Yes (Death, Life-Threatening, Hospitalization, Other)
  Sender: FDA-Public Use
  Company Number: JP-MLMSERVICE-20221101-3894538-1

PATIENT
  Age: 63 Year
  Sex: Female

DRUGS (13)
  1. DOXORUBICIN HYDROCHLORIDE [Suspect]
     Active Substance: DOXORUBICIN HYDROCHLORIDE
     Indication: Bone marrow infiltration
     Dosage: UNK (R-HYPER-CVAD/MA)
  2. DOXORUBICIN HYDROCHLORIDE [Suspect]
     Active Substance: DOXORUBICIN HYDROCHLORIDE
     Indication: Burkitt^s lymphoma stage IV
  3. METHOTREXATE SODIUM [Suspect]
     Active Substance: METHOTREXATE SODIUM
     Indication: Bone marrow infiltration
     Dosage: HIGH-DOSE (R-HYPER-CVAD/MA)
  4. METHOTREXATE SODIUM [Suspect]
     Active Substance: METHOTREXATE SODIUM
     Indication: Burkitt^s lymphoma stage IV
  5. RITUXIMAB [Suspect]
     Active Substance: RITUXIMAB
     Indication: Burkitt^s lymphoma stage IV
     Dosage: UNK (R-HYPER-CVAD/MA)
  6. VINCRISTINE [Suspect]
     Active Substance: VINCRISTINE
     Indication: Burkitt^s lymphoma stage IV
     Dosage: UNK (R-HYPER-CVAD/MA)
  7. VINCRISTINE [Suspect]
     Active Substance: VINCRISTINE
     Indication: Bone marrow infiltration
  8. CYCLOPHOSPHAMIDE [Suspect]
     Active Substance: CYCLOPHOSPHAMIDE
     Indication: Burkitt^s lymphoma stage IV
     Dosage: UNK (R-HYPER-CVAD/MA)
  9. CYCLOPHOSPHAMIDE [Suspect]
     Active Substance: CYCLOPHOSPHAMIDE
     Indication: Bone marrow infiltration
  10. CYTARABINE [Suspect]
     Active Substance: CYTARABINE
     Indication: Burkitt^s lymphoma stage IV
     Dosage: UNK (R-HYPER-CVAD/MA)
  11. CYTARABINE [Suspect]
     Active Substance: CYTARABINE
     Indication: Bone marrow infiltration
  12. DEXAMETHASONE [Suspect]
     Active Substance: DEXAMETHASONE
     Indication: Burkitt^s lymphoma stage IV
     Dosage: UNK (R-HYPER-CVAD/MA)
  13. DEXAMETHASONE [Suspect]
     Active Substance: DEXAMETHASONE
     Indication: Bone marrow infiltration

REACTIONS (8)
  - Oophoritis [Fatal]
  - Meningitis viral [Fatal]
  - Cytomegalovirus infection [Fatal]
  - Cytomegalovirus chorioretinitis [Fatal]
  - Aspergillus infection [Recovered/Resolved]
  - Pancytopenia [Recovering/Resolving]
  - Liver injury [Unknown]
  - Febrile neutropenia [Unknown]
